FAERS Safety Report 21559860 (Version 2)
Quarter: 2022Q4

REPORT INFORMATION
  Report Type: Spontaneous
  Country: ES (occurrence: ES)
  Receive Date: 20221107
  Receipt Date: 20221115
  Transmission Date: 20230113
  Serious: Yes (Hospitalization)
  Sender: FDA-Public Use
  Company Number: ES-IFC-2022001955

PATIENT

DRUGS (6)
  1. MUPIROCIN [Interacting]
     Active Substance: MUPIROCIN
     Indication: Dermatitis diaper
     Dosage: UNK
     Route: 065
  2. DOXYCYCLINE [Suspect]
     Active Substance: DOXYCYCLINE
     Indication: Impetigo
     Dosage: 100 MG, QD
     Route: 048
  3. NEOMYCIN\NYSTATIN\TRIAMCINOLONE [Interacting]
     Active Substance: NEOMYCIN\NYSTATIN\TRIAMCINOLONE
     Indication: Dermatitis diaper
     Dosage: UNK
     Route: 065
  4. QUETIAPINE [Concomitant]
     Active Substance: QUETIAPINE
     Indication: Product used for unknown indication
     Dosage: 25 MG, QD
     Route: 065
  5. LACTULOSE [Concomitant]
     Active Substance: LACTULOSE
     Indication: Product used for unknown indication
     Dosage: UNK
     Route: 065
  6. FUROSEMIDE [Concomitant]
     Active Substance: FUROSEMIDE
     Indication: Product used for unknown indication
     Dosage: 40 MG;AT BREAKFAST
     Route: 065

REACTIONS (2)
  - Condition aggravated [Recovering/Resolving]
  - Drug interaction [Unknown]
